FAERS Safety Report 16307281 (Version 1)
Quarter: 2019Q2

REPORT INFORMATION
  Report Type: Spontaneous
  Country: CN (occurrence: CN)
  Receive Date: 20190514
  Receipt Date: 20190514
  Transmission Date: 20190711
  Serious: Yes (Other)
  Sender: FDA-Public Use
  Company Number: CN-009507513-1905CHN004226

PATIENT
  Age: 80 Year
  Sex: Male
  Weight: 80 kg

DRUGS (1)
  1. INVANZ [Suspect]
     Active Substance: ERTAPENEM SODIUM
     Indication: EVIDENCE BASED TREATMENT
     Dosage: 1 GRAM, QD
     Route: 041
     Dates: start: 20190327, end: 20190401

REACTIONS (4)
  - Loss of consciousness [Recovered/Resolved]
  - Agitation [Recovered/Resolved]
  - Mental disorder [Recovered/Resolved]
  - Hallucination, visual [Recovered/Resolved]

NARRATIVE: CASE EVENT DATE: 20190401
